FAERS Safety Report 13942892 (Version 1)
Quarter: 2017Q3

REPORT INFORMATION
  Report Type: Other
  Country: GB (occurrence: TR)
  Receive Date: 20170906
  Receipt Date: 20170906
  Transmission Date: 20171127
  Serious: Yes (Hospitalization, Other)
  Sender: FDA-Public Use
  Company Number: TR-INTERNATIONAL MEDICATION SYSTEMS, LIMITED-2025663

PATIENT
  Age: 55 Year
  Sex: Female

DRUGS (19)
  1. VECURONIUM [Concomitant]
     Active Substance: VECURONIUM BROMIDE
  2. DEXKETOPROFEN TROMETAMOL [Concomitant]
     Active Substance: DEXKETOPROFEN TROMETAMOL
     Route: 042
  3. CEFAZOLIN SODIUM. [Concomitant]
     Active Substance: CEFAZOLIN SODIUM
     Route: 042
  4. RANITIDINE. [Suspect]
     Active Substance: RANITIDINE
     Route: 042
  5. PARACETAMOL [Concomitant]
     Active Substance: ACETAMINOPHEN
     Route: 042
  6. OXYGEN. [Concomitant]
     Active Substance: OXYGEN
  7. PROPOFOL. [Suspect]
     Active Substance: PROPOFOL
  8. FENTANYL. [Concomitant]
     Active Substance: FENTANYL
  9. MIDAZOLAM [Suspect]
     Active Substance: MIDAZOLAM HYDROCHLORIDE
  10. VECURONIUM [Concomitant]
     Active Substance: VECURONIUM BROMIDE
  11. TRAMADOL HYDROCHLORIDE. [Concomitant]
     Active Substance: TRAMADOL HYDROCHLORIDE
  12. CEFAZOLIN SODIUM. [Concomitant]
     Active Substance: CEFAZOLIN SODIUM
     Route: 042
  13. TENOXICAM [Concomitant]
     Active Substance: TENOXICAM
     Route: 042
  14. ATROPINE. [Suspect]
     Active Substance: ATROPINE
     Indication: REVERSAL OF SEDATION
  15. SEVOFLURANE. [Concomitant]
     Active Substance: SEVOFLURANE
  16. ENOXAPARIN SODIUM. [Concomitant]
     Active Substance: ENOXAPARIN SODIUM
     Route: 058
  17. REMIFENTANIL 40 CC SF 10 ML / HOUR BY DILUTING [Concomitant]
  18. NEOSTIGMINE METHYLSULFATE. [Concomitant]
     Active Substance: NEOSTIGMINE METHYLSULFATE
  19. TRAMADOL. [Concomitant]
     Active Substance: TRAMADOL
     Route: 030

REACTIONS (8)
  - Visual field defect [None]
  - Blood pressure systolic increased [None]
  - Nausea [None]
  - Headache [None]
  - Cataract [None]
  - Open angle glaucoma [Recovered/Resolved]
  - Procedural haemorrhage [None]
  - Therapy non-responder [None]
